FAERS Safety Report 12921610 (Version 1)
Quarter: 2016Q4

REPORT INFORMATION
  Report Type: Spontaneous
  Country: US (occurrence: US)
  Receive Date: 20161108
  Receipt Date: 20161108
  Transmission Date: 20170207
  Serious: Yes (Hospitalization, Other)
  Sender: FDA-Public Use
  Company Number: US-SA-2016SA200871

PATIENT
  Age: 60 Year
  Sex: Female

DRUGS (10)
  1. FOLIC ACID. [Concomitant]
     Active Substance: FOLIC ACID
     Route: 065
  2. ZYRTEC [Concomitant]
     Active Substance: CETIRIZINE HYDROCHLORIDE
     Route: 065
  3. LEVOTHYROXINE. [Concomitant]
     Active Substance: LEVOTHYROXINE
     Route: 065
  4. LOVENOX [Suspect]
     Active Substance: ENOXAPARIN SODIUM
     Route: 065
  5. DEXILANT [Concomitant]
     Active Substance: DEXLANSOPRAZOLE
     Route: 065
  6. REQUIP [Concomitant]
     Active Substance: ROPINIROLE HYDROCHLORIDE
     Route: 065
  7. COUMADIN [Suspect]
     Active Substance: WARFARIN SODIUM
     Route: 065
  8. SINGULAIR [Concomitant]
     Active Substance: MONTELUKAST SODIUM
     Route: 065
  9. JANUMET [Concomitant]
     Active Substance: METFORMIN HYDROCHLORIDE\SITAGLIPTIN PHOSPHATE
     Route: 065
  10. TANZEUM [Suspect]
     Active Substance: ALBIGLUTIDE
     Indication: DIABETES MELLITUS
     Route: 058
     Dates: start: 2015

REACTIONS (12)
  - Thrombosis [Recovering/Resolving]
  - Peripheral swelling [Recovering/Resolving]
  - Blood viscosity increased [Unknown]
  - Headache [Recovered/Resolved]
  - Erythema [Unknown]
  - Pulmonary thrombosis [Unknown]
  - Vomiting [Recovered/Resolved]
  - Altered state of consciousness [Unknown]
  - Surgery [Unknown]
  - Migraine [Recovered/Resolved]
  - Apparent death [Unknown]
  - Drug ineffective [Unknown]

NARRATIVE: CASE EVENT DATE: 201606
